FAERS Safety Report 18208629 (Version 2)
Quarter: 2020Q3

REPORT INFORMATION
  Report Type: Spontaneous
  Country: US (occurrence: US)
  Receive Date: 20200828
  Receipt Date: 20200917
  Transmission Date: 20201103
  Serious: No
  Sender: FDA-Public Use
  Company Number: US-VERTEX PHARMACEUTICALS-2020-014183

PATIENT
  Sex: Female

DRUGS (1)
  1. KALYDECO [Suspect]
     Active Substance: IVACAFTOR
     Indication: CYSTIC FIBROSIS
     Dosage: 50 MG IVACAFTOR GRANULES, BID
     Route: 048
     Dates: start: 20200630

REACTIONS (2)
  - Nasopharyngitis [Unknown]
  - Eczema [Unknown]

NARRATIVE: CASE EVENT DATE: 2020
